FAERS Safety Report 5015123-6 (Version None)
Quarter: 2006Q2

REPORT INFORMATION
  Report Type: 
  Country: None (occurrence: None)
  Receive Date: 20060530
  Receipt Date: 20060515
  Transmission Date: 20061013
  Serious: Yes (Other)
  Sender: FDA-Public Use
  Company Number: 225307

PATIENT
  Age: 11 Year
  Sex: Female
  Weight: 40 kg

DRUGS (1)
  1. XOLAIR [Suspect]
     Dosage: 300 MG, SUBCUTANEOUS
     Route: 058
     Dates: start: 20060426, end: 20060427

REACTIONS (6)
  - ARRHYTHMIA [None]
  - DEHYDRATION [None]
  - FATIGUE [None]
  - SOMNOLENCE [None]
  - STOMACH DISCOMFORT [None]
  - VOMITING [None]
